FAERS Safety Report 21190761 (Version 1)
Quarter: 2022Q3

REPORT INFORMATION
  Report Type: Report from Study
  Country: RU (occurrence: RU)
  Receive Date: 20220809
  Receipt Date: 20220809
  Transmission Date: 20221027
  Serious: Yes (Death, Hospitalization, Other)
  Sender: FDA-Public Use
  Company Number: RU-GLAXOSMITHKLINE-RU2022EME113933

PATIENT

DRUGS (11)
  1. ACYCLOVIR [Suspect]
     Active Substance: ACYCLOVIR
     Indication: Prophylaxis
     Dosage: UNK
  2. SULFAMETHOXAZOLE\TRIMETHOPRIM [Suspect]
     Active Substance: SULFAMETHOXAZOLE\TRIMETHOPRIM
     Indication: Prophylaxis
     Dosage: UNK
  3. METHOTREXATE [Concomitant]
     Active Substance: METHOTREXATE
     Indication: Acute lymphocytic leukaemia
     Dosage: HIGH DOSE
  4. ETOPOSIDE [Concomitant]
     Active Substance: ETOPOSIDE
     Indication: Acute lymphocytic leukaemia
     Dosage: UNK
  5. CYTARABINE [Concomitant]
     Active Substance: CYTARABINE
     Indication: Acute lymphocytic leukaemia
     Dosage: UNK
  6. MICAFUNGIN [Concomitant]
     Active Substance: MICAFUNGIN
     Indication: Antifungal prophylaxis
     Dosage: 2 MG/KG, 1D
  7. THIOTEPA [Concomitant]
     Active Substance: THIOTEPA
     Indication: Acute lymphocytic leukaemia
     Dosage: UNK
  8. FLUDARABINE PHOSPHATE [Concomitant]
     Active Substance: FLUDARABINE PHOSPHATE
     Indication: Acute lymphocytic leukaemia
     Dosage: UNK
  9. RITUXIMAB [Concomitant]
     Active Substance: RITUXIMAB
     Indication: Prophylaxis
     Dosage: UNK
  10. ABATACEPT [Concomitant]
     Active Substance: ABATACEPT
     Indication: Prophylaxis
     Dosage: UNK
  11. METHYLPREDNISOLONE [Concomitant]
     Active Substance: METHYLPREDNISOLONE
     Indication: Graft versus host disease
     Dosage: 2 MG/KG, 1D

REACTIONS (14)
  - Multiple organ dysfunction syndrome [Fatal]
  - Cytomegalovirus infection [Recovered/Resolved]
  - Cough [Unknown]
  - Pyrexia [Unknown]
  - Bronchopulmonary aspergillosis [Unknown]
  - Mucormycosis [Unknown]
  - Dyspnoea [Unknown]
  - Painful respiration [Unknown]
  - Respiratory failure [Unknown]
  - Generalised tonic-clonic seizure [Unknown]
  - C-reactive protein increased [Unknown]
  - Lung infiltration [Unknown]
  - Encephalitis [Unknown]
  - Sinusitis [Unknown]
